FAERS Safety Report 11167153 (Version 1)
Quarter: 2015Q2

REPORT INFORMATION
  Report Type: Spontaneous
  Country: PL (occurrence: None)
  Receive Date: 20150603
  Receipt Date: 20150603
  Transmission Date: 20150821
  Serious: Yes (Other)
  Sender: FDA-Public Use
  Company Number: 2014DEPPL00595

PATIENT
  Age: 29 Year
  Sex: Male

DRUGS (1)
  1. DEPOCYT [Suspect]
     Active Substance: CYTARABINE
     Indication: DIFFUSE LARGE B-CELL LYMPHOMA
     Route: 037

REACTIONS (1)
  - Cauda equina syndrome [None]
